FAERS Safety Report 8372791-9 (Version None)
Quarter: 2012Q2

REPORT INFORMATION
  Report Type: 
  Country: None (occurrence: None)
  Receive Date: 20120521
  Receipt Date: 20120515
  Transmission Date: 20120825
  Serious: Yes (Death)
  Sender: FDA-Public Use
  Company Number: NL-PFIZER INC-2012118615

PATIENT
  Age: 50 Year
  Sex: Male

DRUGS (1)
  1. VARENICLINE TARTRATE [Suspect]
     Indication: SMOKING CESSATION THERAPY
     Dosage: 0.5 MG, 3X/DAY
     Dates: start: 20120329

REACTIONS (2)
  - ACUTE MYOCARDIAL INFARCTION [None]
  - DEATH [None]
